FAERS Safety Report 25335055 (Version 2)
Quarter: 2025Q2

REPORT INFORMATION
  Report Type: Spontaneous
  Country: IT (occurrence: IT)
  Receive Date: 20250520
  Receipt Date: 20250602
  Transmission Date: 20250717
  Serious: Yes (Death, Life-Threatening, Hospitalization, Other)
  Sender: ALKEM
  Company Number: None

PATIENT
  Age: 5 Year
  Sex: Male

DRUGS (6)
  1. MYCOPHENOLATE MOFETIL [Suspect]
     Active Substance: MYCOPHENOLATE MOFETIL
     Indication: Prophylaxis against graft versus host disease
     Dosage: 60 MILLIGRAM, QD (EVERY 1 DAY)
     Route: 065
  2. TACROLIMUS [Suspect]
     Active Substance: TACROLIMUS
     Indication: Prophylaxis against graft versus host disease
     Dosage: 0.1 MILLIGRAM/KILOGRAM, QD
     Route: 065
  3. CYCLOPHOSPHAMIDE [Suspect]
     Active Substance: CYCLOPHOSPHAMIDE
     Indication: Prophylaxis against graft versus host disease
     Route: 065
  4. CYCLOSPORINE [Suspect]
     Active Substance: CYCLOSPORINE
     Indication: Prophylaxis against graft versus host disease
     Dosage: 3 MILLIGRAM/KILOGRAM, QD (EVERY 1 DAY)
     Route: 065
  5. PREDNISONE [Suspect]
     Active Substance: PREDNISONE
     Indication: Prophylaxis against graft versus host disease
     Route: 065
  6. RUXOLITINIB [Suspect]
     Active Substance: RUXOLITINIB
     Indication: Prophylaxis against graft versus host disease
     Route: 065

REACTIONS (15)
  - Brain oedema [Fatal]
  - Brain herniation [Fatal]
  - Coma [Fatal]
  - Hydrocephalus [Unknown]
  - Hepatic vein occlusion [Unknown]
  - Pericardial effusion [Unknown]
  - Brain abscess [Fatal]
  - Scedosporium infection [Fatal]
  - Graft versus host disease in skin [Unknown]
  - Joint abscess [Unknown]
  - Transplant failure [Unknown]
  - Bacterial sepsis [Unknown]
  - Cytomegalovirus infection [Unknown]
  - Respiratory syncytial virus infection [Unknown]
  - Influenza [Unknown]
